FAERS Safety Report 4393361-3 (Version None)
Quarter: 2004Q3

REPORT INFORMATION
  Report Type: 
  Country: None (occurrence: None)
  Receive Date: 20040709
  Receipt Date: 20040309
  Transmission Date: 20050211
  Serious: Yes (Other)
  Sender: FDA-Public Use
  Company Number: FR-ROCHE-361223

PATIENT
  Age: 22 Year
  Sex: Female

DRUGS (1)
  1. SORIATANE [Suspect]
     Indication: PSORIASIS
     Route: 048
     Dates: end: 20030515

REACTIONS (2)
  - NO ADVERSE EFFECT [None]
  - PREGNANCY [None]
